FAERS Safety Report 4835292-8 (Version None)
Quarter: 2005Q4

REPORT INFORMATION
  Report Type: 
  Country: None (occurrence: None)
  Receive Date: 20051122
  Receipt Date: 20051031
  Transmission Date: 20060501
  Serious: Yes (Hospitalization)
  Sender: FDA-Public Use
  Company Number: JP-MERCK-0511USA00659

PATIENT
  Age: 67 Year
  Sex: Female
  Weight: 58 kg

DRUGS (7)
  1. COZAAR [Suspect]
     Indication: VENTRICULAR REMODELING
     Route: 048
     Dates: start: 20051005, end: 20051029
  2. COZAAR [Suspect]
     Indication: HYPERTENSION
     Route: 048
     Dates: start: 20051005, end: 20051029
  3. ROHYPNOL [Suspect]
     Indication: INSOMNIA
     Route: 048
     Dates: start: 20051011, end: 20051028
  4. HEPARIN SODIUM [Suspect]
     Route: 065
     Dates: start: 20051005, end: 20051104
  5. ALDACTONE [Concomitant]
     Indication: DIURETIC THERAPY
     Route: 048
     Dates: start: 20051008
  6. MAGNESIUM OXIDE [Concomitant]
     Indication: CONSTIPATION PROPHYLAXIS
     Route: 048
     Dates: start: 20051006
  7. PROCYLIN [Concomitant]
     Indication: PULMONARY ARTERY DILATATION
     Route: 065
     Dates: start: 20051004, end: 20051102

REACTIONS (3)
  - PANCYTOPENIA [None]
  - PLATELET COUNT DECREASED [None]
  - PYREXIA [None]
